FAERS Safety Report 4504245-1 (Version None)
Quarter: 2004Q4

REPORT INFORMATION
  Report Type: 
  Country: None (occurrence: None)
  Receive Date: 20041116
  Receipt Date: 20041104
  Transmission Date: 20050328
  Serious: Yes (Hospitalization, Other)
  Sender: FDA-Public Use
  Company Number: 2004088419

PATIENT
  Sex: Female
  Weight: 77.1115 kg

DRUGS (6)
  1. BENGAY (MENTHOL) [Suspect]
     Indication: MUSCLE SPASMS
     Dosage: QD TOPICAL
     Route: 061
  2. DRUG, UNSEPCIFIED (DRUG, UNSPECIFIED) [Suspect]
     Dates: end: 20040801
  3. NAPROXEN SODIUM [Concomitant]
  4. FUROSEMIDE [Concomitant]
  5. VITAMINS NOS [Concomitant]
  6. PROPACET 100 [Concomitant]

REACTIONS (6)
  - ARTHRALGIA [None]
  - EXOSTOSIS [None]
  - MYOCARDIAL INFARCTION [None]
  - OSTEOMYELITIS [None]
  - POST PROCEDURAL COMPLICATION [None]
  - TOE AMPUTATION [None]
